FAERS Safety Report 20473789 (Version 1)
Quarter: 2022Q1

REPORT INFORMATION
  Report Type: Spontaneous
  Country: US (occurrence: None)
  Receive Date: 20220214
  Receipt Date: 20220214
  Transmission Date: 20220423
  Serious: Yes (Hospitalization)
  Sender: FDA-Public Use
  Company Number: None

PATIENT
  Age: 82 Year
  Sex: Male
  Weight: 66.22 kg

DRUGS (1)
  1. PRAMIPEXOLE DIHYDROCHLORIDE [Suspect]
     Active Substance: PRAMIPEXOLE DIHYDROCHLORIDE
     Indication: Restless legs syndrome
     Dates: start: 20170410, end: 20211109

REACTIONS (5)
  - Fall [None]
  - Hallucinations, mixed [None]
  - Muscle spasms [None]
  - Extra dose administered [None]
  - Clostridium difficile infection [None]

NARRATIVE: CASE EVENT DATE: 20211109
